FAERS Safety Report 9283453 (Version 1)
Quarter: 2013Q2

REPORT INFORMATION
  Report Type: Spontaneous
  Country: US (occurrence: US)
  Receive Date: 20130510
  Receipt Date: 20130510
  Transmission Date: 20140414
  Serious: No
  Sender: FDA-Public Use
  Company Number: US-GLAXOSMITHKLINE-A1009671A

PATIENT
  Sex: Female

DRUGS (1)
  1. TYKERB [Suspect]
     Indication: PRODUCT USED FOR UNKNOWN INDICATION
     Dosage: 250MG UNKNOWN
     Dates: start: 20130101

REACTIONS (5)
  - Rash [Unknown]
  - Arthralgia [Unknown]
  - Onychoclasis [Unknown]
  - Onychalgia [Unknown]
  - Nail disorder [Unknown]
